FAERS Safety Report 17987553 (Version 2)
Quarter: 2020Q3

REPORT INFORMATION
  Report Type: Report from Study
  Country: None (occurrence: US)
  Receive Date: 20200707
  Receipt Date: 20200709
  Transmission Date: 20201103
  Serious: Yes (Other)
  Sender: FDA-Public Use
  Company Number: US-ABBVIE-19K-163-3147246-00

PATIENT
  Sex: Male

DRUGS (3)
  1. IMBRUVICA [Suspect]
     Active Substance: IBRUTINIB
     Indication: LYMPHOCYTIC LEUKAEMIA
     Route: 048
     Dates: start: 20190521
  2. IMBRUVICA [Suspect]
     Active Substance: IBRUTINIB
     Route: 048
  3. IMBRUVICA [Suspect]
     Active Substance: IBRUTINIB
     Indication: CHRONIC LYMPHOCYTIC LEUKAEMIA
     Route: 048
     Dates: start: 20190522

REACTIONS (7)
  - White blood cell count increased [Recovered/Resolved]
  - Weight decreased [Unknown]
  - Vascular rupture [Unknown]
  - Onychoclasis [Recovering/Resolving]
  - Decreased appetite [Unknown]
  - Haemorrhagic diathesis [Recovering/Resolving]
  - Arthralgia [Recovering/Resolving]
